FAERS Safety Report 9528621 (Version 3)
Quarter: 2013Q4

REPORT INFORMATION
  Report Type: Spontaneous
  Country: FR (occurrence: FR)
  Receive Date: 20130917
  Receipt Date: 20131021
  Transmission Date: 20140711
  Serious: Yes (Hospitalization)
  Sender: FDA-Public Use
  Company Number: FR-TEVA-431251ISR

PATIENT
  Age: 74 Year
  Sex: Female

DRUGS (6)
  1. OROCAL [Suspect]
     Dosage: 500 MILLIGRAM DAILY;
     Route: 048
     Dates: start: 20130621, end: 20130623
  2. LACTULOSE [Suspect]
     Dosage: 1 DOSAGE FORMS DAILY;
     Route: 048
     Dates: start: 20130620, end: 20130624
  3. LYRICA [Suspect]
     Dosage: 50 MILLIGRAM DAILY;
     Route: 048
     Dates: start: 20130618, end: 20130625
  4. SKENAN [Suspect]
     Indication: SCIATICA
     Dosage: 20 MILLIGRAM DAILY;
     Route: 048
     Dates: start: 20130619, end: 20130625
  5. FRAGMINE [Suspect]
     Dosage: 5000 IU (INTERNATIONAL UNIT) DAILY;
     Route: 058
     Dates: start: 20130616, end: 20130624
  6. DOLIPRANE [Concomitant]
     Dosage: 3000 MILLIGRAM DAILY;
     Route: 048
     Dates: start: 20130608

REACTIONS (3)
  - Cholestasis [Recovered/Resolved]
  - Hepatic enzyme increased [Unknown]
  - Hydrocholecystis [Unknown]
